FAERS Safety Report 5410735-X (Version None)
Quarter: 2007Q3

REPORT INFORMATION
  Report Type: 
  Country: None (occurrence: None)
  Receive Date: 20070810
  Receipt Date: 20070129
  Transmission Date: 20080115
  Serious: No
  Sender: FDA-Public Use
  Company Number: A0637477A

PATIENT
  Sex: Male

DRUGS (1)
  1. PAXIL CR [Suspect]
     Indication: DRUG USE FOR UNKNOWN INDICATION
     Dosage: 37.5MG UNKNOWN
     Route: 048
     Dates: start: 20030101, end: 20061201

REACTIONS (3)
  - ADVERSE DRUG REACTION [None]
  - DEPRESSION [None]
  - DIZZINESS [None]
